FAERS Safety Report 14722964 (Version 1)
Quarter: 2018Q2

REPORT INFORMATION
  Report Type: Report from Study
  Country: KR (occurrence: KR)
  Receive Date: 20180405
  Receipt Date: 20180405
  Transmission Date: 20180711
  Serious: Yes (Other)
  Sender: FDA-Public Use
  Company Number: KR-TEVA-2018-KR-877245

PATIENT
  Age: 1 Month
  Sex: Male

DRUGS (7)
  1. IFOSFAMIDE. [Suspect]
     Active Substance: IFOSFAMIDE
     Indication: NEUROBLASTOMA
     Dosage: 1200 MG/M2/DAY ON DAY 0-DAY 4 (PART OF ICE REGIMEN)
     Route: 065
  2. CISPLATIN. [Suspect]
     Active Substance: CISPLATIN
     Indication: NEUROBLASTOMA
     Dosage: 60 MG/M2/DAY ON DAY 0 (PART OF CEDC REGIMEN)
     Route: 065
  3. CYCLOPHOSPHAMIDE. [Suspect]
     Active Substance: CYCLOPHOSPHAMIDE
     Indication: NEUROBLASTOMA
     Dosage: 30 MG/KG/DAY ON DAY 3 AND DAY 4 (PART OF CEDC REGIMEN)
     Route: 065
  4. ETOPOSIDE. [Suspect]
     Active Substance: ETOPOSIDE
     Dosage: 100 MG/M2/DAY ON DAY 0-DAY 4 (ICE REGIMEN)
     Route: 065
  5. DOXORUBICIN [Suspect]
     Active Substance: DOXORUBICIN
     Indication: NEUROBLASTOMA
     Dosage: 30 MG/M2/DAY ON DAY 2 (PART OF CEDC REGIMEN)
     Route: 065
  6. CARBOPLATIN. [Suspect]
     Active Substance: CARBOPLATIN
     Indication: NEUROBLASTOMA
     Dosage: 400 MG/M2/DAY ON DAY 0 AND DAY 1 (PART OF ICE REGIMEN)
     Route: 065
  7. ETOPOSIDE. [Suspect]
     Active Substance: ETOPOSIDE
     Indication: NEUROBLASTOMA
     Dosage: 100 MG/M2/DAY ON DAY 2 AND DAY 5 (CEDC REGIMEN)
     Route: 065

REACTIONS (1)
  - Renal tubular disorder [Unknown]
